FAERS Safety Report 9222498 (Version 1)
Quarter: 2013Q2

REPORT INFORMATION
  Report Type: Spontaneous
  Country: US (occurrence: US)
  Receive Date: 20130410
  Receipt Date: 20130410
  Transmission Date: 20140414
  Serious: Yes (Hospitalization)
  Sender: FDA-Public Use
  Company Number: US-TEVA-396794USA

PATIENT
  Sex: 0

DRUGS (1)
  1. CLOZAPINE [Suspect]
     Indication: SLEEP DISORDER

REACTIONS (1)
  - Gastric disorder [Unknown]
